FAERS Safety Report 26191592 (Version 1)
Quarter: 2025Q4

REPORT INFORMATION
  Report Type: Spontaneous
  Country: US (occurrence: None)
  Receive Date: 20251219
  Receipt Date: 20251219
  Transmission Date: 20260117
  Serious: Yes (Other)
  Sender: FDA-CTU
  Company Number: None

PATIENT
  Age: 9 Week
  Sex: Female
  Weight: 4.22 kg

DRUGS (1)
  1. NIRSEVIMAB-ALIP [Suspect]
     Active Substance: NIRSEVIMAB-ALIP
     Indication: Immunisation
     Dosage: FREQUENCY : ONCE;
     Route: 030
     Dates: start: 20251219, end: 20251219

REACTIONS (1)
  - Incorrect dose administered [None]

NARRATIVE: CASE EVENT DATE: 20251219
